FAERS Safety Report 8426830-7 (Version None)
Quarter: 2012Q2

REPORT INFORMATION
  Report Type: 
  Country: None (occurrence: None)
  Receive Date: 20120611
  Receipt Date: 20120605
  Transmission Date: 20120825
  Serious: Yes (Hospitalization)
  Sender: FDA-Public Use
  Company Number: NL-ROCHE-1043858

PATIENT
  Sex: Female
  Weight: 72 kg

DRUGS (13)
  1. VINCRISTINE [Suspect]
     Dosage: RESTARTED
  2. PREDNISONE TAB [Suspect]
     Dosage: RESTARTED
  3. DOXORUBICIN HCL [Suspect]
     Indication: DIFFUSE LARGE B-CELL LYMPHOMA
     Dosage: DATE OF LAST DOSE 14 FEB 2012, DOSE DELAYED
     Route: 042
     Dates: start: 20120214
  4. DOXORUBICIN HCL [Suspect]
     Dosage: RESTARTED
  5. CYCLOPHOSPHAMIDE [Suspect]
     Dosage: RESTARTED
  6. FILGRASTIM [Suspect]
     Dosage: RESTARTED
  7. METOCLOPRAMIDE [Concomitant]
     Indication: NAUSEA
     Dosage: LAST DOSE PRIOR TO SAE ON 27/FEB/2012
     Route: 048
     Dates: start: 20120131
  8. CYCLOPHOSPHAMIDE [Suspect]
     Indication: DIFFUSE LARGE B-CELL LYMPHOMA
     Dosage: LAST DOSE PRIOR TO SAE: 18 FEB 2012, DOSE DELAYED
     Route: 042
     Dates: start: 20120214
  9. FILGRASTIM [Suspect]
     Indication: DIFFUSE LARGE B-CELL LYMPHOMA
     Dosage: DATE OF LAST DOSE 15 FEB 2012, DOSE DELAYED
     Route: 058
     Dates: start: 20120215
  10. COTRIM [Concomitant]
     Indication: PROPHYLAXIS
     Dosage: DOSE: 160/800 MG, LAST DOSE PRIOR TO SAE ON 27/FEB/2012
     Route: 048
     Dates: start: 20120126
  11. VINCRISTINE [Suspect]
     Indication: DIFFUSE LARGE B-CELL LYMPHOMA
     Dosage: DATE OF LAST DOSE 14 FEB 2012, DOSE DELAYED
     Route: 042
     Dates: start: 20120214
  12. PREDNISONE TAB [Suspect]
     Indication: DIFFUSE LARGE B-CELL LYMPHOMA
     Dosage: DATE OF LAST DOSE 18 FEB 2012, DOSE DELAYED
     Route: 048
     Dates: start: 20120214
  13. VALACYCLOVIR HYDROCHLORIDE [Concomitant]
     Indication: PROPHYLAXIS
     Dosage: LAST DOSE PRIOR TO SAE ON 27/FEB/2012
     Route: 048
     Dates: start: 20120126

REACTIONS (1)
  - DEHYDRATION [None]
